FAERS Safety Report 7249981-1 (Version None)
Quarter: 2011Q1

REPORT INFORMATION
  Report Type: 
  Country: None (occurrence: None)
  Receive Date: 20110128
  Receipt Date: 20110119
  Transmission Date: 20110831
  Serious: Yes (Hospitalization)
  Sender: FDA-Public Use
  Company Number: US-JNJFOC-20110105575

PATIENT
  Sex: Female
  Weight: 50 kg

DRUGS (7)
  1. APRISO [Concomitant]
     Indication: COLITIS ULCERATIVE
  2. REMICADE [Suspect]
     Indication: COLITIS ULCERATIVE
     Route: 042
  3. PAXIL [Concomitant]
  4. PREVACID [Concomitant]
     Indication: GASTROOESOPHAGEAL REFLUX DISEASE
  5. REMICADE [Suspect]
     Route: 042
  6. CARAFATE [Concomitant]
     Indication: GASTROINTESTINAL ULCER
     Dosage: 6 HOURLY.
  7. PREDNISONE [Concomitant]
     Indication: COLITIS ULCERATIVE

REACTIONS (4)
  - BLOOD PRESSURE DECREASED [None]
  - INFUSION RELATED REACTION [None]
  - TACHYCARDIA [None]
  - PYREXIA [None]
